FAERS Safety Report 20972909 (Version 1)
Quarter: 2022Q2

REPORT INFORMATION
  Report Type: Spontaneous
  Country: CN (occurrence: CN)
  Receive Date: 20220617
  Receipt Date: 20220617
  Transmission Date: 20220721
  Serious: Yes (Other)
  Sender: FDA-Public Use
  Company Number: CN-ALVOGEN-2022-ALVOGEN-120532

PATIENT
  Age: 63 Year
  Sex: Male

DRUGS (8)
  1. DEXAMETHASONE [Suspect]
     Active Substance: DEXAMETHASONE
     Indication: Plasma cell myeloma
  2. BORTEZOMIB [Suspect]
     Active Substance: BORTEZOMIB
     Indication: Plasma cell myeloma
  3. LENALIDOMIDE [Suspect]
     Active Substance: LENALIDOMIDE
     Indication: Plasma cell myeloma
  4. DARATUMUMAB [Suspect]
     Active Substance: DARATUMUMAB
     Indication: Plasma cell myeloma
  5. THALIDOMIDE [Suspect]
     Active Substance: THALIDOMIDE
     Indication: Plasma cell myeloma
     Dosage: BETWEEN CYCLES
  6. MELPHALAN [Concomitant]
     Active Substance: MELPHALAN
     Indication: Transplant
     Dosage: 200 MG/M2 OF BODY SURFACE AREA
  7. PLERIXAFOR [Concomitant]
     Active Substance: PLERIXAFOR
     Indication: Transplant
  8. VENETOCLAX [Concomitant]
     Active Substance: VENETOCLAX
     Indication: Plasma cell myeloma

REACTIONS (2)
  - Plasma cell myeloma [Recovering/Resolving]
  - Metastases to central nervous system [Recovering/Resolving]
